FAERS Safety Report 5711610-3 (Version None)
Quarter: 2008Q2

REPORT INFORMATION
  Report Type: 
  Country: None (occurrence: None)
  Receive Date: 20080421
  Receipt Date: 20080416
  Transmission Date: 20081010
  Serious: Yes (Life-Threatening, Hospitalization, Disabling, Other)
  Sender: FDA-Public Use
  Company Number: GB-ASTRAZENECA-2008GB00687

PATIENT
  Age: 80 Year
  Sex: Male
  Weight: 70 kg

DRUGS (9)
  1. OMEPRAZOLE [Suspect]
     Indication: OESOPHAGITIS
     Route: 048
     Dates: start: 20070101
  2. AMLODIPINE [Concomitant]
     Indication: HYPERTENSION
     Route: 048
     Dates: start: 20050101
  3. TAMSULOSIN HCL [Concomitant]
     Indication: BENIGN PROSTATIC HYPERPLASIA
     Route: 048
     Dates: start: 20070101
  4. ASPIRIN [Concomitant]
     Indication: CORONARY ARTERY BYPASS
     Route: 048
     Dates: start: 20070101
  5. FOLIC ACID [Concomitant]
  6. LEVOTHYROXINE SODIUM [Concomitant]
     Indication: HYPOTHYROIDISM
     Route: 048
     Dates: start: 20070101
  7. DIGOXIN TRANSFUSION [Concomitant]
     Indication: ATRIAL FIBRILLATION
     Route: 048
     Dates: start: 20080201
  8. CLOPIDOGREL [Concomitant]
     Dosage: PREVIOUS MEDICATION
  9. ATORVASTATIN CALCIUM [Concomitant]
     Dosage: PREVIOUS MEDICATION

REACTIONS (1)
  - HAEMOLYTIC ANAEMIA [None]
